FAERS Safety Report 4480978-0 (Version None)
Quarter: 2004Q4

REPORT INFORMATION
  Report Type: 
  Country: None (occurrence: None)
  Receive Date: 20041019
  Receipt Date: 20041007
  Transmission Date: 20050328
  Serious: Yes (Death)
  Sender: FDA-Public Use
  Company Number: 2004074952

PATIENT
  Age: 42 Year
  Sex: Female
  Weight: 136.0791 kg

DRUGS (4)
  1. UNISOM [Suspect]
     Indication: COMPLETED SUICIDE
     Dosage: 57 TABLETS ONCE, ORAL
     Route: 048
     Dates: end: 20040320
  2. MEDINITE (DEXTROMETHORPHAN HYDROBROMIDE,DOXYLAMINE SUCCINATE,EPHEDRINE [Suspect]
     Indication: COMPLETED SUICIDE
     Dosage: ORAL
     Route: 048
     Dates: end: 20040320
  3. ETHANOL (ETHANOL) [Concomitant]
     Dosage: ORAL
     Route: 048
  4. IBUPROFEN [Concomitant]

REACTIONS (2)
  - COMPLETED SUICIDE [None]
  - OVERDOSE [None]
